FAERS Safety Report 20489459 (Version 1)
Quarter: 2022Q1

REPORT INFORMATION
  Report Type: Spontaneous
  Country: GB (occurrence: GB)
  Receive Date: 20220218
  Receipt Date: 20220218
  Transmission Date: 20220423
  Serious: Yes (Hospitalization)
  Sender: FDA-Public Use
  Company Number: None

PATIENT
  Age: 44 Year

DRUGS (2)
  1. APIXABAN [Suspect]
     Active Substance: APIXABAN
     Indication: Product used for unknown indication
     Dosage: 10 MILLIGRAM, BID (10MG TWICE A DAY REDUCING TO 5MG TWICE A DAY REVIEW IN VTE CLINIC)
     Route: 048
     Dates: start: 20220127
  2. APIXABAN [Suspect]
     Active Substance: APIXABAN
     Dosage: 5 MILLIGRAM, BID (10MG TWICE A DAY REDUCING TO 5MG TWICE A DAY REVIEW IN VTE CLINIC)
     Route: 048

REACTIONS (2)
  - Eye pruritus [Not Recovered/Not Resolved]
  - Vomiting [Recovered/Resolved]

NARRATIVE: CASE EVENT DATE: 20220127
